FAERS Safety Report 19521435 (Version 1)
Quarter: 2021Q3

REPORT INFORMATION
  Report Type: Spontaneous
  Country: IT (occurrence: IT)
  Receive Date: 20210712
  Receipt Date: 20210712
  Transmission Date: 20211014
  Serious: Yes (Death)
  Sender: FDA-Public Use
  Company Number: IT-TEVA-2021-IT-1931592

PATIENT
  Age: 90 Year
  Sex: Male
  Weight: 85 kg

DRUGS (1)
  1. ALLOPURINOL. [Suspect]
     Active Substance: ALLOPURINOL
     Indication: HYPERURICAEMIA
     Dosage: 300 MG
     Route: 048
     Dates: start: 20210601, end: 20210614

REACTIONS (3)
  - Erythema [Fatal]
  - Blister [Fatal]
  - Toxic epidermal necrolysis [Fatal]

NARRATIVE: CASE EVENT DATE: 20210612
